FAERS Safety Report 26113791 (Version 2)
Quarter: 2025Q4

REPORT INFORMATION
  Report Type: Spontaneous
  Country: CN (occurrence: CN)
  Receive Date: 20251202
  Receipt Date: 20251208
  Transmission Date: 20260118
  Serious: Yes (Other)
  Sender: NOVARTIS
  Company Number: CN-002147023-NVSC2025CN070772

PATIENT
  Age: 60 Year
  Sex: Male

DRUGS (4)
  1. FABHALTA [Suspect]
     Active Substance: IPTACOPAN HYDROCHLORIDE
     Indication: Paroxysmal nocturnal haemoglobinuria
     Dosage: 200 MG/ TIME (ABOUT OVER 50 DAYS) START DATE: 2025 (1 PILL AT A TIME)
     Route: 048
     Dates: start: 202502
  2. FABHALTA [Suspect]
     Active Substance: IPTACOPAN HYDROCHLORIDE
     Dosage: 200 MG, QD (PER TIME)
     Route: 048
     Dates: start: 202509, end: 202511
  3. FABHALTA [Suspect]
     Active Substance: IPTACOPAN HYDROCHLORIDE
     Dosage: 200 MG, BID (PER TIME)
     Route: 048
     Dates: start: 202511
  4. ASPIRIN [Concomitant]
     Active Substance: ASPIRIN
     Indication: Product used for unknown indication
     Dosage: UNK
     Route: 065

REACTIONS (29)
  - Blood pressure diastolic increased [Recovered/Resolved]
  - Sexual dysfunction [Not Recovered/Not Resolved]
  - Dizziness [Not Recovered/Not Resolved]
  - Headache [Not Recovered/Not Resolved]
  - Impaired healing [Not Recovered/Not Resolved]
  - Urinary tract infection [Not Recovered/Not Resolved]
  - Back pain [Not Recovered/Not Resolved]
  - Myalgia [Not Recovered/Not Resolved]
  - Tongue coated [Not Recovered/Not Resolved]
  - Feeling cold [Not Recovered/Not Resolved]
  - Drug ineffective [Not Recovered/Not Resolved]
  - Skin exfoliation [Not Recovered/Not Resolved]
  - Renal pain [Not Recovered/Not Resolved]
  - Dry skin [Not Recovered/Not Resolved]
  - Bilirubin conjugated increased [Not Recovered/Not Resolved]
  - Incorrect dose administered [Unknown]
  - Cystitis [Unknown]
  - Chromaturia [Unknown]
  - Abdominal pain upper [Unknown]
  - Nausea [Unknown]
  - Spinal pain [Unknown]
  - Pain in extremity [Unknown]
  - Haemoglobin decreased [Recovering/Resolving]
  - Conjunctival pallor [Unknown]
  - Pallor [Unknown]
  - Therapeutic product effect incomplete [Unknown]
  - Bladder pain [Not Recovered/Not Resolved]
  - Chest discomfort [Not Recovered/Not Resolved]
  - Chest pain [Not Recovered/Not Resolved]

NARRATIVE: CASE EVENT DATE: 20250201
